FAERS Safety Report 11370788 (Version 2)
Quarter: 2015Q3

REPORT INFORMATION
  Report Type: Report from Study
  Country: US (occurrence: US)
  Receive Date: 20150812
  Receipt Date: 20150824
  Transmission Date: 20151125
  Serious: No
  Sender: FDA-Public Use
  Company Number: PHHY2014US074568

PATIENT
  Age: 47 Year
  Sex: Male

DRUGS (3)
  1. GILENYA [Suspect]
     Active Substance: FINGOLIMOD HYDROCHLORIDE
     Indication: MULTIPLE SCLEROSIS
     Dosage: UNK, QD
     Route: 065
  2. VICODIN [Concomitant]
     Active Substance: ACETAMINOPHEN\HYDROCODONE BITARTRATE
     Indication: MUSCLE STRAIN
     Route: 065
     Dates: start: 20130726, end: 20130730
  3. PREDNISONE. [Concomitant]
     Active Substance: PREDNISONE
     Indication: MUSCLE STRAIN
     Route: 065
     Dates: start: 20130726, end: 20130730

REACTIONS (8)
  - Concomitant disease aggravated [Recovered/Resolved]
  - Spinal osteoarthritis [Unknown]
  - Upper respiratory tract infection [Recovered/Resolved]
  - Blood thyroid stimulating hormone increased [Not Recovered/Not Resolved]
  - Gamma-glutamyltransferase increased [Not Recovered/Not Resolved]
  - Liver function test abnormal [Recovered/Resolved]
  - Sinusitis noninfective [Not Recovered/Not Resolved]
  - Vitamin D deficiency [Recovered/Resolved]

NARRATIVE: CASE EVENT DATE: 20130415
